FAERS Safety Report 10013978 (Version 1)
Quarter: 2014Q1

REPORT INFORMATION
  Report Type: Spontaneous
  Country: FR (occurrence: FR)
  Receive Date: 20140316
  Receipt Date: 20140316
  Transmission Date: 20141002
  Serious: Yes (Hospitalization)
  Sender: FDA-Public Use
  Company Number: FR-JNJFOC-20140306927

PATIENT
  Sex: Male

DRUGS (8)
  1. XARELTO [Suspect]
     Indication: THROMBOSIS PROPHYLAXIS
     Route: 048
     Dates: start: 20130129
  2. ZONEGRAN [Concomitant]
     Route: 065
  3. DEPAKINE CHRONO [Concomitant]
     Route: 065
  4. PAROXETINE [Concomitant]
     Route: 065
  5. CRESTOR [Concomitant]
     Route: 065
  6. SERETIDE DISKUS [Concomitant]
     Route: 065
  7. LAMICTAL [Concomitant]
     Route: 065
  8. URBANYL [Concomitant]
     Route: 065

REACTIONS (2)
  - Epistaxis [Recovered/Resolved]
  - Iron deficiency [Unknown]
